FAERS Safety Report 5943822-8 (Version None)
Quarter: 2008Q4

REPORT INFORMATION
  Report Type: 
  Country: None (occurrence: None)
  Receive Date: 20081106
  Receipt Date: 20081029
  Transmission Date: 20090506
  Serious: Yes (Other)
  Sender: FDA-Public Use
  Company Number: SE-PFIZER INC-2008091424

PATIENT
  Age: 81 Year
  Sex: Female

DRUGS (3)
  1. ACCUPRO [Suspect]
     Dosage: DAILY DOSE:10MG
     Dates: end: 20060101
  2. AMLODIPINE [Suspect]
  3. SELOKEN [Concomitant]

REACTIONS (1)
  - HEPATITIS [None]
